FAERS Safety Report 6279526-4 (Version None)
Quarter: 2009Q3

REPORT INFORMATION
  Report Type: 
  Country: None (occurrence: None)
  Receive Date: 20090721
  Receipt Date: 20090714
  Transmission Date: 20100115
  Serious: Yes (Hospitalization, Other)
  Sender: FDA-Public Use
  Company Number: GXKR2009DE07296

PATIENT
  Sex: Male
  Weight: 1900 kg

DRUGS (1)
  1. METFORMIN HCL [Suspect]
     Dosage: MATERNAL DOSE: 500 MG DAILY, TRANSPLACENTAL
     Route: 064

REACTIONS (10)
  - BRADYARRHYTHMIA [None]
  - BRADYCARDIA [None]
  - CAESAREAN SECTION [None]
  - CONVULSION [None]
  - FOETAL GROWTH RETARDATION [None]
  - HYPERBILIRUBINAEMIA NEONATAL [None]
  - MATERNAL DRUGS AFFECTING FOETUS [None]
  - NEONATAL INFECTION [None]
  - PREMATURE BABY [None]
  - WOLFF-PARKINSON-WHITE SYNDROME [None]
